FAERS Safety Report 11659899 (Version 1)
Quarter: 2015Q4

REPORT INFORMATION
  Report Type: Spontaneous
  Country: GB (occurrence: GB)
  Receive Date: 20151026
  Receipt Date: 20151026
  Transmission Date: 20160304
  Serious: Yes (Other)
  Sender: FDA-Public Use
  Company Number: GB-PFIZER INC-2015353471

PATIENT
  Age: 50 Year
  Sex: Female

DRUGS (2)
  1. PIZOTIFEN [Concomitant]
     Active Substance: PIZOTYLINE
     Indication: MIGRAINE PROPHYLAXIS
  2. PRAZOSIN HCL [Suspect]
     Active Substance: PRAZOSIN HYDROCHLORIDE
     Indication: MIGRAINE PROPHYLAXIS
     Dosage: 1 DF, 1X/DAY AT NIGHT
     Route: 048

REACTIONS (2)
  - Wrong drug administered [Unknown]
  - Blood pressure increased [Recovered/Resolved]

NARRATIVE: CASE EVENT DATE: 20150805
